FAERS Safety Report 6642739-3 (Version None)
Quarter: 2010Q1

REPORT INFORMATION
  Report Type: 
  Country: None (occurrence: None)
  Receive Date: 20100319
  Receipt Date: 20100309
  Transmission Date: 20100710
  Serious: Yes (Other)
  Sender: FDA-Public Use
  Company Number: TR-PFIZER INC-2010030662

PATIENT

DRUGS (2)
  1. CHAMPIX [Suspect]
     Dosage: UNK
     Dates: start: 20100101, end: 20100101
  2. COUMADIN [Concomitant]

REACTIONS (2)
  - DYSPHONIA [None]
  - FACE OEDEMA [None]
